FAERS Safety Report 10272747 (Version 1)
Quarter: 2014Q2

REPORT INFORMATION
  Report Type: Spontaneous
  Country: US (occurrence: None)
  Receive Date: 20140630
  Receipt Date: 20140630
  Transmission Date: 20141212
  Serious: Yes (Hospitalization, Other)
  Sender: FDA-Public Use
  Company Number: None

PATIENT
  Age: 29 Year
  Sex: Female

DRUGS (2)
  1. METOPROLOL SUCCINATE [Suspect]
  2. ESSURE [Concomitant]

REACTIONS (4)
  - Migraine with aura [None]
  - Head injury [None]
  - Blindness transient [None]
  - Blindness unilateral [None]
